FAERS Safety Report 9315717 (Version 2)
Quarter: 2013Q2

REPORT INFORMATION
  Report Type: Spontaneous
  Country: GB (occurrence: GB)
  Receive Date: 20130529
  Receipt Date: 20130620
  Transmission Date: 20140414
  Serious: Yes (Other)
  Sender: FDA-Public Use
  Company Number: PHHY2013GB053383

PATIENT
  Age: 39 Year
  Sex: Female

DRUGS (3)
  1. TRIAMCINOLONE [Suspect]
     Indication: CYSTOID MACULAR OEDEMA
     Dosage: 40 MG, UNK
  2. TRIAMCINOLONE [Interacting]
     Dosage: 40 MG, UNK
  3. KALETRA [Interacting]
     Indication: HIV INFECTION

REACTIONS (4)
  - Cushing^s syndrome [Recovered/Resolved]
  - Lipohypertrophy [Recovered/Resolved]
  - Cushingoid [Recovered/Resolved]
  - Drug interaction [Unknown]
